FAERS Safety Report 13629764 (Version 1)
Quarter: 2017Q2

REPORT INFORMATION
  Report Type: Spontaneous
  Country: FR (occurrence: FR)
  Receive Date: 20170608
  Receipt Date: 20170608
  Transmission Date: 20170830
  Serious: Yes (Life-Threatening, Hospitalization)
  Sender: FDA-Public Use
  Company Number: FR-TEVA-775485ROM

PATIENT
  Age: 64 Year
  Sex: Female

DRUGS (17)
  1. DACARBAZINE MEDAC 500 MG [Concomitant]
     Active Substance: DACARBAZINE
     Indication: HODGKIN^S DISEASE MIXED CELLULARITY STAGE UNSPECIFIED
     Route: 042
     Dates: start: 20160922, end: 20161006
  2. PREVISCAN 20 MG [Concomitant]
     Active Substance: FLUINDIONE
     Indication: ATRIAL FIBRILLATION
     Dosage: 5 MILLIGRAM DAILY;
     Route: 048
  3. PANTOPRAZOLE ARROW 20 MG [Concomitant]
     Active Substance: PANTOPRAZOLE SODIUM
     Dosage: 20 MILLIGRAM DAILY; FORM: GASTRO-RESISTANT TABLET
     Route: 048
  4. DIFFU K [Concomitant]
     Active Substance: POTASSIUM CHLORIDE
     Indication: HYPOKALAEMIA
     Route: 048
  5. BACTRIM [Concomitant]
     Active Substance: SULFAMETHOXAZOLE\TRIMETHOPRIM
     Indication: OPPORTUNISTIC INFECTION PROPHYLAXIS
     Route: 048
  6. ALDACTONE 50 MG [Concomitant]
     Indication: HYPERTENSION
     Dosage: 50 MILLIGRAM DAILY;
     Route: 048
  7. FLAGYL [Concomitant]
     Active Substance: METRONIDAZOLE\METRONIDAZOLE HYDROCHLORIDE
     Indication: DIARRHOEA INFECTIOUS
     Dosage: 1500 MILLIGRAM DAILY;
     Route: 048
  8. COZAAR [Concomitant]
     Active Substance: LOSARTAN POTASSIUM
     Indication: HYPERTENSION
     Dosage: 25 MILLIGRAM DAILY;
     Route: 048
  9. HEMIGOXINE NATIVELLE 0.125 MG [Concomitant]
     Indication: ATRIAL FIBRILLATION
     Route: 048
  10. LASILIX 40 MG [Concomitant]
     Active Substance: FUROSEMIDE
     Indication: HYPERTENSION
     Dosage: 40 MILLIGRAM DAILY;
     Route: 048
  11. DOLIPRANE [Concomitant]
     Active Substance: ACETAMINOPHEN
     Indication: PAIN
     Dosage: 500 MILLIGRAM DAILY;
     Route: 048
  12. VELBE 10 MG [Suspect]
     Active Substance: VINBLASTINE SULFATE
     Indication: HODGKIN^S DISEASE MIXED CELLULARITY STAGE UNSPECIFIED
     Dosage: PROTOCOL ABVD (DOXORUBICIN, BLEOMYCINE, VINBLATINE, DACARBAZINE)
     Route: 042
     Dates: start: 20160922, end: 20161031
  13. ZELITREX 500 MG [Concomitant]
     Active Substance: VALACYCLOVIR HYDROCHLORIDE
     Indication: OPPORTUNISTIC INFECTION PROPHYLAXIS
     Dosage: 500 MILLIGRAM DAILY;
     Route: 048
  14. DOXORUBICINE TEVA 50 MG/25 ML [Suspect]
     Active Substance: DOXORUBICIN
     Indication: HODGKIN^S DISEASE MIXED CELLULARITY STAGE UNSPECIFIED
     Dosage: PROTOCOL ABVD (DOXORUBICIN, BLEOMYCINE, VINBLATINE, DACARBAZINE)
     Route: 042
     Dates: start: 20160922, end: 20161031
  15. CARVEDILOL. [Concomitant]
     Active Substance: CARVEDILOL
     Indication: HYPERTENSION
     Route: 048
  16. FERINJECT [Concomitant]
     Active Substance: FERRIC CARBOXYMALTOSE
     Indication: ANAEMIA
     Dosage: 1000 MILLIGRAM DAILY;
     Route: 042
     Dates: start: 20161031, end: 20161031
  17. BLEOMYCINE BELLON 15 MG [Suspect]
     Active Substance: BLEOMYCIN SULFATE
     Indication: HODGKIN^S DISEASE MIXED CELLULARITY STAGE UNSPECIFIED
     Dosage: PROTOCOL ABVD (DOXORUBICIN, BLEOMYCINE, VINBLATINE, DACARBAZINE)
     Route: 042
     Dates: start: 20160922, end: 20161031

REACTIONS (6)
  - Hypokalaemia [Recovered/Resolved]
  - Acute respiratory distress syndrome [Recovered/Resolved]
  - Acute pulmonary oedema [Recovered/Resolved]
  - Hypertension [Recovered/Resolved]
  - Respiratory acidosis [Recovered/Resolved]
  - Sinus tachycardia [Recovered/Resolved]

NARRATIVE: CASE EVENT DATE: 20161031
